FAERS Safety Report 8808996 (Version 2)
Quarter: 2012Q4

REPORT INFORMATION
  Report Type: 
  Country: JP (occurrence: None)
  Receive Date: 20120920
  Receipt Date: 20121004
  Transmission Date: 20130627
  Serious: Yes (Hospitalization)
  Sender: FDA-Public Use
  Company Number: 2012SP002023

PATIENT
  Age: 67 Year
  Sex: Female

DRUGS (4)
  1. EPIRUBICIN (EPIRUBICIN) (EPIRUBICIN) [Suspect]
     Indication: BREAST CANCER
  2. FLUOROURACIL (FLUOROURACIL) [Suspect]
  3. CIPROFLOXACIN (CIPROFLOXACIN) [Suspect]
  4. CYCLOPHOSPHAMIDE (CYCLOPHOSPHAMIDE) [Suspect]
     Indication: BREAST CANCER

REACTIONS (2)
  - Interstitial lung disease [None]
  - White blood cell count decreased [None]
